FAERS Safety Report 17238436 (Version 1)
Quarter: 2020Q1

REPORT INFORMATION
  Report Type: Spontaneous
  Country: IN (occurrence: IN)
  Receive Date: 20200104
  Receipt Date: 20200104
  Transmission Date: 20200409
  Serious: Yes (Other)
  Sender: FDA-Public Use
  Company Number: None

PATIENT
  Age: 51 Year
  Sex: Female
  Weight: 55 kg

DRUGS (6)
  1. FOLVIT [Concomitant]
  2. FOLITRAX 15 [Suspect]
     Active Substance: METHOTREXATE SODIUM
     Indication: RHEUMATOID ARTHRITIS
     Dosage: ?          QUANTITY:1 TABLET(S);OTHER FREQUENCY:ONCE A WEEK;?
     Route: 048
  3. PREDINOSOLONE 2.5MG [Concomitant]
  4. HCQS [Concomitant]
  5. VITAMIN B9 [Concomitant]
  6. ETOSHINE 60 [Concomitant]

REACTIONS (2)
  - Gastrooesophageal reflux disease [None]
  - Pain [None]

NARRATIVE: CASE EVENT DATE: 20200102
